FAERS Safety Report 5020952-9 (Version None)
Quarter: 2006Q2

REPORT INFORMATION
  Report Type: 
  Country: None (occurrence: None)
  Receive Date: 20060602
  Receipt Date: 20060523
  Transmission Date: 20061013
  Serious: Yes (Other)
  Sender: FDA-Public Use
  Company Number: T200600560

PATIENT

DRUGS (1)
  1. OPTIRAY 320 [Suspect]
     Dosage: MI, SINGLE, INTRA-ARTERIAL
     Route: 013

REACTIONS (2)
  - CARDIAC PROCEDURE COMPLICATION [None]
  - VENTRICULAR FIBRILLATION [None]
